FAERS Safety Report 14182403 (Version 3)
Quarter: 2018Q1

REPORT INFORMATION
  Report Type: Spontaneous
  Country: VE (occurrence: VE)
  Receive Date: 20171113
  Receipt Date: 20180110
  Transmission Date: 20180508
  Serious: Yes (Hospitalization, Other)
  Sender: FDA-Public Use
  Company Number: VE-ROCHE-2024180

PATIENT
  Sex: Female
  Weight: 55 kg

DRUGS (1)
  1. XOLAIR [Suspect]
     Active Substance: OMALIZUMAB
     Indication: ASTHMA
     Route: 065
     Dates: end: 20170524

REACTIONS (9)
  - Headache [Unknown]
  - Oxygen saturation decreased [Unknown]
  - Choking [Unknown]
  - Asthma [Unknown]
  - Dyspnoea [Unknown]
  - Respiratory arrest [Unknown]
  - Respiratory failure [Unknown]
  - Asthmatic crisis [Unknown]
  - Weight decreased [Unknown]
